FAERS Safety Report 14053213 (Version 1)
Quarter: 2017Q4

REPORT INFORMATION
  Report Type: Spontaneous
  Country: US (occurrence: US)
  Receive Date: 20171005
  Receipt Date: 20171005
  Transmission Date: 20180321
  Serious: Yes (Other)
  Sender: FDA-Public Use
  Company Number: US-ARBOR PHARMACEUTICALS, LLC-US-2016ARB002249

PATIENT

DRUGS (3)
  1. EVEKEO [Suspect]
     Active Substance: AMPHETAMINE SULFATE
     Indication: ATTENTION DEFICIT/HYPERACTIVITY DISORDER
     Dosage: 5 MG, BID
     Route: 048
  2. EVEKEO [Suspect]
     Active Substance: AMPHETAMINE SULFATE
     Dosage: 10 MG, BID
     Route: 048
     Dates: start: 201609
  3. EVEKEO [Suspect]
     Active Substance: AMPHETAMINE SULFATE
     Dosage: 7.5 MG, BID
     Route: 048

REACTIONS (2)
  - Drug ineffective [Unknown]
  - Tachycardia [Not Recovered/Not Resolved]

NARRATIVE: CASE EVENT DATE: 201609
